FAERS Safety Report 4480722-7 (Version None)
Quarter: 2004Q4

REPORT INFORMATION
  Report Type: 
  Country: None (occurrence: None)
  Receive Date: 20041018
  Receipt Date: 20041012
  Transmission Date: 20050328
  Serious: Yes (Hospitalization)
  Sender: FDA-Public Use
  Company Number: MK200410-0113-1

PATIENT
  Age: 80 Year
  Sex: Female

DRUGS (8)
  1. ANAFRANIL [Suspect]
     Dates: end: 20040909
  2. TAHOR [Suspect]
     Dates: end: 20040909
  3. BETASERC [Suspect]
     Dates: end: 20040909
  4. INIPOMP [Suspect]
     Dates: end: 20040909
  5. DIOSMIL [Suspect]
     Dates: end: 20040909
  6. RYTHMOL [Suspect]
     Dates: end: 20040909
  7. KARDEGIC [Suspect]
     Dates: end: 20040909
  8. IMOVANE [Suspect]
     Dates: end: 20040909

REACTIONS (2)
  - CONFUSIONAL STATE [None]
  - HYPONATRAEMIA [None]
